FAERS Safety Report 5958586-1 (Version None)
Quarter: 2008Q4

REPORT INFORMATION
  Report Type: 
  Country: None (occurrence: None)
  Receive Date: 20081110
  Receipt Date: 20081012
  Transmission Date: 20090506
  Serious: Yes (Death)
  Sender: FDA-Public Use
  Company Number: CHPA2008US18029

PATIENT
  Age: 64 Year
  Sex: Female

DRUGS (4)
  1. DIPHENHYDRAMINE HYDROCHLORIDE [Suspect]
     Dosage: ORAL
     Route: 048
  2. QUETIAPINE FUMARATE [Suspect]
     Dosage: ORAL
     Route: 048
  3. VENLAFAXINE HCL [Suspect]
     Dosage: ORAL
     Route: 048
  4. FAMOTIDINE [Suspect]
     Dosage: ORAL
     Route: 048

REACTIONS (1)
  - ADVERSE DRUG REACTION [None]
